FAERS Safety Report 14824295 (Version 1)
Quarter: 2018Q2

REPORT INFORMATION
  Report Type: Other
  Country: NL (occurrence: NL)
  Receive Date: 20180429
  Receipt Date: 20180429
  Transmission Date: 20180711
  Serious: Yes (Other)
  Sender: FDA-Public Use
  Company Number: NL-DEXPHARM-20180276

PATIENT
  Age: 5 Year
  Sex: Male

DRUGS (7)
  1. CLOBAZAM [Concomitant]
     Active Substance: CLOBAZAM
  2. TOPIRAMATE. [Suspect]
     Active Substance: TOPIRAMATE
  3. PHENYTOIN. [Concomitant]
     Active Substance: PHENYTOIN
     Indication: STATUS EPILEPTICUS
  4. ZONISAMIDE. [Suspect]
     Active Substance: ZONISAMIDE
  5. VALPORIC ACID [Concomitant]
     Active Substance: VALPROIC ACID
  6. LEVETIRACETAM. [Suspect]
     Active Substance: LEVETIRACETAM
     Indication: GENERALISED TONIC-CLONIC SEIZURE
  7. LAMOTRIGINE. [Suspect]
     Active Substance: LAMOTRIGINE
     Indication: GENERALISED TONIC-CLONIC SEIZURE

REACTIONS (1)
  - Intelligence test abnormal [Unknown]
